FAERS Safety Report 17846999 (Version 7)
Quarter: 2022Q2

REPORT INFORMATION
  Report Type: Spontaneous
  Country: US (occurrence: US)
  Receive Date: 20200601
  Receipt Date: 20220519
  Transmission Date: 20220721
  Serious: No
  Sender: FDA-Public Use
  Company Number: US-PFIZER INC-2020213427

PATIENT
  Age: 83 Year

DRUGS (1)
  1. PREMARIN [Suspect]
     Active Substance: ESTROGENS, CONJUGATED
     Indication: Urinary tract infection
     Dosage: 1 G, CYCLIC  (EVERY DAY CYCLICALLY, 3 WEEKS ON AND 1 WEEK OFF)
     Route: 067

REACTIONS (3)
  - Fatigue [Unknown]
  - Memory impairment [Unknown]
  - Off label use [Unknown]
